FAERS Safety Report 8919557 (Version 1)
Quarter: 2012Q4

REPORT INFORMATION
  Report Type: 
  Country: US (occurrence: US)
  Receive Date: 20121121
  Receipt Date: 20121121
  Transmission Date: 20130627
  Serious: No
  Sender: FDA-Public Use
  Company Number: US-VERTEX PHARMACEUTICAL INC.-2012-024835

PATIENT
  Sex: Female
  Weight: 104.31 kg

DRUGS (5)
  1. INCIVEK [Suspect]
     Indication: HEPATITIS C
     Dosage: 750 mg, tid
     Route: 048
  2. RIBASPHERE [Suspect]
     Indication: HEPATITIS C
     Dosage: 600 mg, bid
     Route: 048
  3. RIBASPHERE [Suspect]
     Dosage: 200 mg, bid
     Route: 048
  4. RIBASPHERE [Suspect]
     Dosage: 400 mg, UNK
     Route: 048
  5. PEGINTRON                          /01543001/ [Suspect]
     Indication: HEPATITIS C
     Dosage: UNK, qw
     Route: 058

REACTIONS (2)
  - Anaemia [Recovered/Resolved]
  - Drug ineffective [Unknown]
